FAERS Safety Report 5587178-1 (Version None)
Quarter: 2008Q1

REPORT INFORMATION
  Report Type: 
  Country: None (occurrence: None)
  Receive Date: 20080107
  Receipt Date: 20071227
  Transmission Date: 20080703
  Serious: Yes (Hospitalization)
  Sender: FDA-Public Use
  Company Number: 2007-03595

PATIENT
  Age: 55 Year
  Sex: Male
  Weight: 82 kg

DRUGS (9)
  1. VELCADE [Suspect]
     Indication: MULTIPLE MYELOMA
     Dosage: 2.50 MG, INTRAVENOUS
     Route: 042
     Dates: start: 20070716, end: 20070726
  2. DEXAMETHASONE TAB [Suspect]
     Indication: MULTIPLE MYELOMA
     Dosage: 40.00 MG, INTRAVENOUS
     Route: 042
     Dates: start: 20070716, end: 20070727
  3. ALFAROL (ALFACALCIDOL) [Concomitant]
  4. LANSOPRAZOLE [Concomitant]
  5. SIMVASTATIN [Concomitant]
  6. LAXOBERON (SODIUM PICOSULFATE) [Concomitant]
  7. AMIKACIN [Concomitant]
  8. CARBENIN (BETAMIPRON, PANIPENEM) [Concomitant]
  9. KYTRIL [Concomitant]

REACTIONS (5)
  - BRONCHITIS [None]
  - CONSTIPATION [None]
  - EPIGASTRIC DISCOMFORT [None]
  - HEADACHE [None]
  - IMMUNE SYSTEM DISORDER [None]
